FAERS Safety Report 23766392 (Version 1)
Quarter: 2024Q2

REPORT INFORMATION
  Report Type: Spontaneous
  Country: CA (occurrence: CA)
  Receive Date: 20240422
  Receipt Date: 20240422
  Transmission Date: 20240715
  Serious: Yes (Hospitalization, Other)
  Sender: FDA-Public Use
  Company Number: CA-BAXTER-2024BAX016998

PATIENT
  Age: 41 Year
  Sex: Female
  Weight: 94 kg

DRUGS (3)
  1. DOXORUBICIN [Suspect]
     Active Substance: DOXORUBICIN
     Indication: Breast neoplasm
     Dosage: 122.0 MILLIGRAM, 1 EVERY 3 WEEKS, INJECTION, DOSAGE FORM: SOLUTION INTRAVENOUS, (STRENGTH: 10 MG/5ML
     Route: 042
  2. CYCLOPHOSPHAMIDE [Suspect]
     Active Substance: CYCLOPHOSPHAMIDE
     Indication: Breast neoplasm
     Dosage: 1220.0 MILLIGRAM, 1 EVERY 3 WEEKS, DOSAGE FORM: POWDER FOR SOLUTION INTRAVENOUS
     Route: 042
  3. KEYTRUDA [Concomitant]
     Active Substance: PEMBROLIZUMAB
     Dosage: UNK, DOSAGE FORM: SOLUTION INTRAVENOUS, (FOR IV INFUSION SINGLE USE VIAL)
     Route: 065

REACTIONS (2)
  - Febrile neutropenia [Recovered/Resolved]
  - Pneumonia [Recovered/Resolved]
